FAERS Safety Report 10419798 (Version 1)
Quarter: 2014Q2

REPORT INFORMATION
  Report Type: Spontaneous
  Country: US (occurrence: None)
  Receive Date: 20140625
  Receipt Date: 20140625
  Transmission Date: 20141212
  Serious: Yes (Other)
  Sender: FDA-Public Use
  Company Number: PHEH2014US006783

PATIENT
  Sex: 0

DRUGS (1)
  1. AFINITOR (RAD) UNKNOWN [Suspect]

REACTIONS (1)
  - Hyperglycaemia [None]
